FAERS Safety Report 7323050-4 (Version None)
Quarter: 2011Q1

REPORT INFORMATION
  Report Type: 
  Country: None (occurrence: None)
  Receive Date: 20110301
  Receipt Date: 20110218
  Transmission Date: 20110831
  Serious: Yes (Hospitalization)
  Sender: FDA-Public Use
  Company Number: JP-PFIZER INC-2011043169

PATIENT
  Sex: Male

DRUGS (1)
  1. CELECOX [Suspect]
     Dosage: 100 MG, 2X/DAY
     Route: 048
     Dates: start: 20101101, end: 20110101

REACTIONS (1)
  - ULCER [None]
